FAERS Safety Report 13697910 (Version 1)
Quarter: 2017Q2

REPORT INFORMATION
  Report Type: Spontaneous
  Country: US (occurrence: US)
  Receive Date: 20170628
  Receipt Date: 20170628
  Transmission Date: 20170830
  Serious: Yes (Hospitalization)
  Sender: FDA-Public Use
  Company Number: US-DRREDDYS-USA/USA/17/0091608

PATIENT
  Age: 24 Year
  Sex: Female

DRUGS (7)
  1. MOXIFLOXACIN. [Suspect]
     Active Substance: MOXIFLOXACIN
     Indication: TUBERCULOSIS
     Route: 065
  2. RIFAMPIN. [Suspect]
     Active Substance: RIFAMPIN
     Indication: TUBERCULOSIS
     Route: 065
  3. PYRAZINAMIDE. [Concomitant]
     Active Substance: PYRAZINAMIDE
     Indication: TUBERCULOSIS
     Route: 065
  4. MOXIFLOXACIN. [Suspect]
     Active Substance: MOXIFLOXACIN
     Route: 065
  5. MOXIFLOXACIN. [Suspect]
     Active Substance: MOXIFLOXACIN
     Route: 065
  6. MOXIFLOXACIN. [Suspect]
     Active Substance: MOXIFLOXACIN
     Route: 065
  7. ETHAMBUTOL [Concomitant]
     Active Substance: ETHAMBUTOL HYDROCHLORIDE
     Indication: TUBERCULOSIS
     Route: 065

REACTIONS (16)
  - Flushing [Unknown]
  - Eyelid oedema [Recovering/Resolving]
  - Motor dysfunction [Unknown]
  - Myalgia [Unknown]
  - Nausea [Unknown]
  - Dysmenorrhoea [Unknown]
  - Pruritus generalised [Unknown]
  - Drug hypersensitivity [Unknown]
  - Rash maculo-papular [Recovering/Resolving]
  - Abdominal pain [Recovering/Resolving]
  - Rash erythematous [Unknown]
  - Pyrexia [Unknown]
  - Defaecation urgency [Recovering/Resolving]
  - Vomiting [Unknown]
  - Muscle spasms [Unknown]
  - Micturition urgency [Unknown]
